FAERS Safety Report 14652546 (Version 2)
Quarter: 2018Q2

REPORT INFORMATION
  Report Type: Spontaneous
  Country: DK (occurrence: DK)
  Receive Date: 20180319
  Receipt Date: 20180409
  Transmission Date: 20180711
  Serious: Yes (Death)
  Sender: FDA-Public Use
  Company Number: DK-ABBVIE-18K-044-2292028-00

PATIENT
  Sex: Male

DRUGS (2)
  1. DUODOPA [Suspect]
     Active Substance: CARBIDOPA\LEVODOPA
     Indication: PRODUCT USED FOR UNKNOWN INDICATION
     Dosage: 4 ML/PER HOUR
     Route: 050
     Dates: start: 200605
  2. RIVASTIGMIN [Concomitant]
     Active Substance: RIVASTIGMINE
     Indication: PRODUCT USED FOR UNKNOWN INDICATION
     Dosage: 13,3 MG/24 HOURS

REACTIONS (5)
  - Fluid intake reduced [Unknown]
  - Mental disorder [Unknown]
  - Hypophagia [Unknown]
  - Parkinson^s disease [Unknown]
  - Pneumonia [Fatal]
